FAERS Safety Report 11000110 (Version 2)
Quarter: 2015Q2

REPORT INFORMATION
  Report Type: Spontaneous
  Country: US (occurrence: US)
  Receive Date: 20150408
  Receipt Date: 20150420
  Transmission Date: 20150821
  Serious: Yes (Other)
  Sender: FDA-Public Use
  Company Number: US-RB-075233-15

PATIENT
  Age: 54 Year
  Sex: Female

DRUGS (1)
  1. MUCINEX DM MAXIMUM STRENGTH [Suspect]
     Active Substance: DEXTROMETHORPHAN HYDROBROMIDE\GUAIFENESIN
     Indication: DRUG ABUSE
     Dosage: PATIENT TOOK AS LITTLE AS 7 PILLS AND AS MANY AS 14 TABLETS ALL AT ONCE PER DAY
     Route: 065

REACTIONS (4)
  - Wrong technique in drug usage process [Unknown]
  - Intentional overdose [Unknown]
  - Drug dependence [Unknown]
  - Drug abuse [Unknown]
